FAERS Safety Report 24573905 (Version 1)
Quarter: 2024Q4

REPORT INFORMATION
  Report Type: Report from Study
  Country: GB (occurrence: GB)
  Receive Date: 20241104
  Receipt Date: 20241104
  Transmission Date: 20250115
  Serious: Yes (Hospitalization)
  Sender: ROCHE
  Company Number: GB-ROCHE-10000000093

PATIENT
  Sex: Female

DRUGS (4)
  1. TOCILIZUMAB [Suspect]
     Active Substance: TOCILIZUMAB
     Indication: Rheumatoid arthritis
     Dosage: LAST DOSE OF TOCILIZUMAB ON 25-OCT-2024
     Route: 058
     Dates: start: 20240101
  2. AMLODIPINE [Concomitant]
     Active Substance: AMLODIPINE BESYLATE
  3. AMITRIPTYLINE [Concomitant]
     Active Substance: AMITRIPTYLINE
  4. nefulnimide [Concomitant]
     Indication: Rheumatoid arthritis

REACTIONS (4)
  - Sinusitis [Unknown]
  - Pain [Unknown]
  - Wrist fracture [Unknown]
  - Hip fracture [Unknown]
